FAERS Safety Report 6507995-0 (Version None)
Quarter: 2009Q4

REPORT INFORMATION
  Report Type: 
  Country: None (occurrence: None)
  Receive Date: 20091221
  Receipt Date: 20091217
  Transmission Date: 20100525
  Serious: Yes (Other)
  Sender: FDA-Public Use
  Company Number: CHPA2009US23728

PATIENT
  Age: 85 Year
  Sex: Female

DRUGS (3)
  1. ASCRIPTIN BUFFERED REG STRENGTH TABLETS (NCH) [Suspect]
     Indication: PAIN
     Dosage: UNK, QD
     Route: 048
  2. ASCRIPTIN BUFFERED REG STRENGTH TABLETS (NCH) [Suspect]
     Indication: INFLAMMATION
  3. ASCRIPTIN BUFFERED REG STRENGTH TABLETS (NCH) [Suspect]
     Indication: CARDIAC DISORDER

REACTIONS (6)
  - ABDOMINAL PAIN UPPER [None]
  - BLOOD CHOLESTEROL INCREASED [None]
  - INTENTIONAL DRUG MISUSE [None]
  - NAUSEA [None]
  - OFF LABEL USE [None]
  - STENT PLACEMENT [None]
